FAERS Safety Report 17362794 (Version 1)
Quarter: 2020Q1

REPORT INFORMATION
  Report Type: Spontaneous
  Country: SK (occurrence: SK)
  Receive Date: 20200203
  Receipt Date: 20200203
  Transmission Date: 20200409
  Serious: Yes (Congenital Anomaly)
  Sender: FDA-Public Use
  Company Number: SK-MYLANLABS-2020M1010943

PATIENT

DRUGS (6)
  1. LEPONEX [Suspect]
     Active Substance: CLOZAPINE
     Dosage: 25 MILLIGRAM, BID
     Dates: start: 202001
  2. ZINNAT                             /00454602/ [Concomitant]
     Active Substance: CEFUROXIME SODIUM
  3. LEPONEX [Suspect]
     Active Substance: CLOZAPINE
     Indication: SCHIZOAFFECTIVE DISORDER
     Dosage: 25 MILLIGRAM, TID
  4. LEPONEX [Suspect]
     Active Substance: CLOZAPINE
     Dosage: 100 MILLIGRAM, PM
     Dates: start: 20200124
  5. LEPONEX [Suspect]
     Active Substance: CLOZAPINE
     Dosage: 25 MILLIGRAM, QD
     Dates: start: 20191203
  6. QUETIAPIN [Concomitant]
     Active Substance: QUETIAPINE

REACTIONS (2)
  - Heart disease congenital [Unknown]
  - Foetal exposure during pregnancy [Unknown]
